FAERS Safety Report 4762007-4 (Version None)
Quarter: 2005Q3

REPORT INFORMATION
  Report Type: 
  Country: None (occurrence: None)
  Receive Date: 20050831
  Receipt Date: 20050719
  Transmission Date: 20060218
  Serious: Yes (Other)
  Sender: FDA-Public Use
  Company Number: PHEH2005US07805

PATIENT
  Age: 67 Year
  Sex: Female

DRUGS (5)
  1. ENABLEX [Suspect]
     Indication: URINARY INCONTINENCE
     Dosage: 15 MG, QD
     Dates: start: 20050622, end: 20050713
  2. ATACAND [Concomitant]
  3. ATENOLOL [Concomitant]
  4. HYDROCHLOROTHIAZIDE [Concomitant]
  5. LIPITOR /NET/(ATORVASTATIN CALCIUM) [Concomitant]

REACTIONS (1)
  - BLOOD PRESSURE INCREASED [None]
